FAERS Safety Report 7221649-7 (Version None)
Quarter: 2011Q1

REPORT INFORMATION
  Report Type: 
  Country: None (occurrence: None)
  Receive Date: 20110112
  Receipt Date: 20101130
  Transmission Date: 20110831
  Serious: Yes (Death)
  Sender: FDA-Public Use
  Company Number: IT-PFIZER INC-2010161050

PATIENT
  Age: 68 Year
  Sex: Female

DRUGS (5)
  1. NEBIVOLOL HYDROCHLORIDE [Concomitant]
     Dosage: 5 MG, UNK
     Route: 048
     Dates: start: 20100119, end: 20101102
  2. SUTENT [Suspect]
     Indication: RENAL CANCER
     Dosage: 37.5 MG, CYCLIC
     Route: 048
     Dates: start: 20100119, end: 20101102
  3. SINVACOR [Concomitant]
     Dosage: 10 MG, UNK
     Route: 048
     Dates: start: 20100119, end: 20101102
  4. EUTIROX [Concomitant]
     Dosage: 25 UG, UNK
     Route: 048
     Dates: start: 20100413, end: 20101102
  5. LANSOPRAZOLE [Concomitant]
     Dosage: 30 MG
     Route: 048
     Dates: start: 20100119, end: 20101102

REACTIONS (2)
  - CEREBRAL ARTERY EMBOLISM [None]
  - DEATH [None]
